FAERS Safety Report 17520639 (Version 1)
Quarter: 2020Q1

REPORT INFORMATION
  Report Type: Spontaneous
  Country: US (occurrence: US)
  Receive Date: 20200310
  Receipt Date: 20200310
  Transmission Date: 20200409
  Serious: No
  Sender: FDA-Public Use
  Company Number: US-PFIZER INC-2019206127

PATIENT
  Age: 68 Year
  Sex: Female
  Weight: 82 kg

DRUGS (8)
  1. LYRICA [Suspect]
     Active Substance: PREGABALIN
     Indication: FIBROMYALGIA
     Dosage: 25 MG, 2X/DAY
  2. LYRICA [Suspect]
     Active Substance: PREGABALIN
     Indication: NEUROPATHY PERIPHERAL
     Dosage: 25 MG, 1X/DAY
  3. LYRICA [Suspect]
     Active Substance: PREGABALIN
     Indication: SPINAL DISORDER
     Dosage: UNK, 2X/DAY [AFTER 1 WEEK 25/ AM AND 50 /QHS (EVERY NIGHT AT BEDTIME)]
  4. LYRICA [Suspect]
     Active Substance: PREGABALIN
     Dosage: UNK, 2X/DAY [AFTER 1 WEEK 50 BID (TWICE A DAY)]
  5. LYRICA [Suspect]
     Active Substance: PREGABALIN
     Indication: NEURALGIA
     Dosage: 150 MG, DAILY
     Dates: start: 2019
  6. LYRICA [Suspect]
     Active Substance: PREGABALIN
     Dosage: UNK, 2X/DAY [1 WEEK 75 BID (TWICE A DAY)]
  7. LYRICA [Suspect]
     Active Substance: PREGABALIN
     Dosage: 75 MG, 2X/DAY
     Route: 048
     Dates: start: 20190514, end: 20190603
  8. LYRICA [Suspect]
     Active Substance: PREGABALIN
     Dosage: UNK, 1X/DAY [1 WEEK 50/AM AND 75/QHS (EVERY NIGHT AT BEDTIME)]

REACTIONS (3)
  - Drug hypersensitivity [Not Recovered/Not Resolved]
  - Nausea [Unknown]
  - Drug ineffective [Unknown]
